FAERS Safety Report 5910366-9 (Version None)
Quarter: 2008Q4

REPORT INFORMATION
  Report Type: 
  Country: None (occurrence: None)
  Receive Date: 20081007
  Receipt Date: 20071229
  Transmission Date: 20090506
  Serious: No
  Sender: FDA-Public Use
  Company Number: US-ASTRAZENECA-2008UW00014

PATIENT
  Age: 70 Year
  Sex: Female

DRUGS (2)
  1. ARIMIDEX [Suspect]
  2. ESTROGENIC SUBSTANCE [Concomitant]

REACTIONS (3)
  - ARTHRALGIA [None]
  - ERYTHEMA [None]
  - HOT FLUSH [None]
